FAERS Safety Report 7723623-0 (Version None)
Quarter: 2011Q3

REPORT INFORMATION
  Report Type: 
  Country: None (occurrence: None)
  Receive Date: 20110901
  Receipt Date: 20110112
  Transmission Date: 20111222
  Serious: No
  Sender: FDA-Public Use
  Company Number: US-BAYER-2011-003815

PATIENT
  Sex: Female

DRUGS (2)
  1. NASONEX [Concomitant]
     Indication: HYPERSENSITIVITY
  2. MIRENA [Suspect]

REACTIONS (1)
  - HYPERSENSITIVITY [None]
